FAERS Safety Report 14258900 (Version 1)
Quarter: 2017Q4

REPORT INFORMATION
  Report Type: Spontaneous
  Country: US (occurrence: None)
  Receive Date: 20171207
  Receipt Date: 20171207
  Transmission Date: 20180321
  Serious: Yes (Death, Hospitalization)
  Sender: FDA-Public Use
  Company Number: None

PATIENT
  Age: 64 Year
  Sex: Male
  Weight: 82.7 kg

DRUGS (2)
  1. CYTARABINE. [Suspect]
     Active Substance: CYTARABINE
     Dates: end: 20130404
  2. DAUNORUBICIN [Suspect]
     Active Substance: DAUNORUBICIN
     Dates: end: 20121209

REACTIONS (7)
  - Diarrhoea [None]
  - Hypotension [None]
  - Depressed level of consciousness [None]
  - Respiratory arrest [None]
  - Acute kidney injury [None]
  - Pancytopenia [None]
  - Bacterial sepsis [None]

NARRATIVE: CASE EVENT DATE: 20130410
